FAERS Safety Report 5336926-4 (Version None)
Quarter: 2007Q2

REPORT INFORMATION
  Report Type: 
  Country: None (occurrence: None)
  Receive Date: 20070529
  Receipt Date: 20070521
  Transmission Date: 20071010
  Serious: Yes (Other)
  Sender: FDA-Public Use
  Company Number: DE-ROCHE-496716

PATIENT
  Age: 52 Year
  Sex: Female

DRUGS (6)
  1. CELLCEPT [Suspect]
     Indication: CHORIORETINITIS
     Dosage: DOSE RPTD AS 2X1000 MG
     Route: 065
     Dates: start: 20050801
  2. DICLAC [Interacting]
     Indication: DRUG USE FOR UNKNOWN INDICATION
     Route: 065
     Dates: start: 20060101
  3. MAGNESIUM SULFATE [Interacting]
     Indication: DRUG USE FOR UNKNOWN INDICATION
     Dosage: DRUG START DATE RPTD AS 2007.TRADE NAME RPTD AS SCHUESSLER SALZ.
     Route: 065
  4. POTASSIUM ACETATE [Concomitant]
     Dosage: DRUG START DATE RPTD AS 2007.
  5. BISOBETA [Concomitant]
  6. LISINOPRIL [Concomitant]

REACTIONS (3)
  - CHORIORETINITIS [None]
  - DRUG INTERACTION [None]
  - MENISCUS OPERATION [None]
